FAERS Safety Report 9689846 (Version 1)
Quarter: 2013Q4

REPORT INFORMATION
  Report Type: Spontaneous
  Country: CA (occurrence: CA)
  Receive Date: 20131115
  Receipt Date: 20131115
  Transmission Date: 20140711
  Serious: Yes (Hospitalization)
  Sender: FDA-Public Use
  Company Number: CA-ROCHE-1301035

PATIENT
  Age: 45 Year
  Sex: Female
  Weight: 52.21 kg

DRUGS (4)
  1. CLONAZEPAM [Suspect]
     Indication: PRODUCT USED FOR UNKNOWN INDICATION
     Dosage: THERAPY DURATION : 4.0 DAYS
     Route: 048
  2. PAROXETINE [Suspect]
     Indication: PRODUCT USED FOR UNKNOWN INDICATION
     Dosage: THERAPY DURATION : 6.0 DAYS
     Route: 048
  3. ADVIL [Concomitant]
     Route: 048
  4. TYLENOL [Concomitant]
     Route: 048

REACTIONS (25)
  - Agitation [Not Recovered/Not Resolved]
  - Anxiety [Not Recovered/Not Resolved]
  - Chest discomfort [Not Recovered/Not Resolved]
  - Confusional state [Not Recovered/Not Resolved]
  - Convulsion [Not Recovered/Not Resolved]
  - Disturbance in attention [Not Recovered/Not Resolved]
  - Dizziness [Not Recovered/Not Resolved]
  - Euphoric mood [Not Recovered/Not Resolved]
  - Fatigue [Not Recovered/Not Resolved]
  - Hunger [Not Recovered/Not Resolved]
  - Hyperhidrosis [Not Recovered/Not Resolved]
  - Hypertension [Not Recovered/Not Resolved]
  - Incoherent [Not Recovered/Not Resolved]
  - Increased appetite [Not Recovered/Not Resolved]
  - Insomnia [Not Recovered/Not Resolved]
  - Mental impairment [Not Recovered/Not Resolved]
  - Movement disorder [Not Recovered/Not Resolved]
  - Palpitations [Not Recovered/Not Resolved]
  - Panic attack [Not Recovered/Not Resolved]
  - Paraesthesia [Not Recovered/Not Resolved]
  - Respiratory rate increased [Not Recovered/Not Resolved]
  - Restlessness [Not Recovered/Not Resolved]
  - Throat tightness [Not Recovered/Not Resolved]
  - Tremor [Not Recovered/Not Resolved]
  - Withdrawal syndrome [Not Recovered/Not Resolved]
